FAERS Safety Report 22377049 (Version 1)
Quarter: 2023Q2

REPORT INFORMATION
  Report Type: Spontaneous
  Country: US (occurrence: US)
  Receive Date: 20230529
  Receipt Date: 20230529
  Transmission Date: 20230721
  Serious: No
  Sender: FDA-Public Use
  Company Number: US-Accord-283907

PATIENT
  Sex: Female
  Weight: 77.11 kg

DRUGS (5)
  1. ATORVASTATIN [Suspect]
     Active Substance: ATORVASTATIN
     Indication: Blood cholesterol
     Dosage: 10MG /ORAL/ONCE A DAY
     Route: 048
  2. LEVOXYL [Concomitant]
     Active Substance: LEVOTHYROXINE SODIUM
     Dosage: 88 MCG/ORAL/ONCE A DAY
  3. METHENAMINE [Concomitant]
     Active Substance: METHENAMINE
     Indication: Cystitis
     Dosage: ONE TABLET ONCE A?DAY
  4. ECHINACEA [Concomitant]
     Active Substance: ECHINACEA, UNSPECIFIED
  5. VITAMINS [Concomitant]
     Active Substance: VITAMINS

REACTIONS (2)
  - Dyspnoea [Not Recovered/Not Resolved]
  - Incorrect dose administered [Unknown]
